FAERS Safety Report 11977337 (Version 6)
Quarter: 2017Q2

REPORT INFORMATION
  Report Type: Spontaneous
  Country: FR (occurrence: FR)
  Receive Date: 20160129
  Receipt Date: 20170424
  Transmission Date: 20170829
  Serious: Yes (Hospitalization, Other)
  Sender: FDA-Public Use
  Company Number: FR-PFIZER INC-2016037403

PATIENT
  Age: 58 Year
  Sex: Female

DRUGS (13)
  1. AMLOR [Suspect]
     Active Substance: AMLODIPINE BESYLATE
     Indication: HYPERTENSION
     Dosage: 5 MG, ONCE DAILY
     Route: 048
     Dates: start: 201508
  2. METOCLOPRAMIDE. [Concomitant]
     Active Substance: METOCLOPRAMIDE
     Dosage: UNK, AS NEEDED
     Route: 048
  3. TEMODAL [Suspect]
     Active Substance: TEMOZOLOMIDE
     Dosage: 260 MG, DAILY (OTHER 2 COURSES, AS ADJUVANT THERAPY)
     Route: 048
     Dates: start: 201509, end: 201510
  4. PREDNISOLONE. [Concomitant]
     Active Substance: PREDNISOLONE
     Dosage: 30 MG, ONCE DAILY
     Route: 048
  5. CORDARONE [Suspect]
     Active Substance: AMIODARONE HYDROCHLORIDE
     Indication: ATRIAL FIBRILLATION
     Dosage: 200 MG, DAILY  (5 DAYS OUT OF 7DAYS)
     Route: 048
     Dates: start: 201508
  6. INEXIUM [Suspect]
     Active Substance: ESOMEPRAZOLE
     Indication: GASTRIC ULCER
     Dosage: 40 MG, ONCE DAILY
     Route: 048
     Dates: end: 201601
  7. INNOHEP [Suspect]
     Active Substance: TINZAPARIN SODIUM
     Dosage: 1400 UG/KG, ONCE DAILY
     Route: 058
     Dates: start: 201508, end: 20151130
  8. ALPRAZOLAM. [Concomitant]
     Active Substance: ALPRAZOLAM
     Dosage: 0.25 MG, (AS NEEDED)
     Route: 048
  9. KEPPRA [Suspect]
     Active Substance: LEVETIRACETAM
     Dosage: 500 MG 2 DF (1000 MG), 2X/DAY (IN THE MORNING AND IN THE EVENING)
     Route: 048
  10. KEPPRA [Suspect]
     Active Substance: LEVETIRACETAM
     Dosage: UNK
     Route: 065
  11. TEMODAL [Suspect]
     Active Substance: TEMOZOLOMIDE
     Indication: GLIOBLASTOMA
     Dosage: 135 MG, DAILY (2 INITIAL COURSES,5 DAYS OUT OF 7 DAYS)
     Route: 048
     Dates: start: 201507, end: 201508
  12. CARDENSIEL [Concomitant]
     Active Substance: BISOPROLOL FUMARATE
     Indication: HYPERTENSION
     Dosage: 2.5 MG, ONCE DAILY
     Route: 048
     Dates: start: 201508
  13. GLIADEL [Concomitant]
     Active Substance: CARMUSTINE
     Indication: GLIOBLASTOMA
     Dosage: UNK, ONE

REACTIONS (5)
  - Agranulocytosis [Recovered/Resolved]
  - Pancytopenia [Recovering/Resolving]
  - Thrombocytopenia [Not Recovered/Not Resolved]
  - Pyrexia [Recovered/Resolved]
  - Febrile bone marrow aplasia [Not Recovered/Not Resolved]

NARRATIVE: CASE EVENT DATE: 201511
